FAERS Safety Report 24693854 (Version 1)
Quarter: 2024Q4

REPORT INFORMATION
  Report Type: Report from Study
  Country: US (occurrence: US)
  Receive Date: 20241204
  Receipt Date: 20241204
  Transmission Date: 20250115
  Serious: Yes (Other)
  Sender: TAKEDA
  Company Number: US-TAKEDA-2024TUS109513

PATIENT
  Sex: Female

DRUGS (2)
  1. VEDOLIZUMAB [Suspect]
     Active Substance: VEDOLIZUMAB
     Indication: Crohn^s disease
     Dosage: 108 MILLIGRAM, Q2WEEKS
  2. VEDOLIZUMAB [Suspect]
     Active Substance: VEDOLIZUMAB

REACTIONS (9)
  - Crohn^s disease [Unknown]
  - Diarrhoea [Unknown]
  - Product dose omission issue [Unknown]
  - Malaise [Unknown]
  - Product availability issue [Unknown]
  - Abdominal pain [Unknown]
  - Vomiting [Unknown]
  - Haemorrhoids [Unknown]
  - Nausea [Unknown]
